FAERS Safety Report 9400479 (Version 2)
Quarter: 2013Q3

REPORT INFORMATION
  Report Type: Spontaneous
  Country: US (occurrence: US)
  Receive Date: 20130715
  Receipt Date: 20130918
  Transmission Date: 20140515
  Serious: Yes (Other)
  Sender: FDA-Public Use
  Company Number: US-GLAXOSMITHKLINE-A1031219A

PATIENT
  Sex: Female

DRUGS (15)
  1. ADVAIR [Suspect]
     Indication: CHRONIC OBSTRUCTIVE PULMONARY DISEASE
     Dosage: 1PUFF TWICE PER DAY
     Route: 055
  2. AMLODIPINE [Concomitant]
  3. CARVEDILOL [Concomitant]
  4. SPIRONOLACTONE [Concomitant]
  5. FENOFIBRATE [Concomitant]
  6. SPIRIVA [Concomitant]
  7. PRO-AIR [Concomitant]
  8. NIACIN [Concomitant]
  9. ASPIRIN [Concomitant]
  10. NITRO SPRAY [Concomitant]
  11. COQ10 [Concomitant]
  12. VITAMIN [Concomitant]
  13. ALLERGY MEDICATION [Concomitant]
  14. FUROSEMIDE [Concomitant]
  15. MAGNESIUM [Concomitant]

REACTIONS (4)
  - Pericardial effusion [Unknown]
  - Drug administration error [Unknown]
  - Fluid retention [Unknown]
  - Product quality issue [Unknown]
